FAERS Safety Report 13348505 (Version 2)
Quarter: 2017Q2

REPORT INFORMATION
  Report Type: Spontaneous
  Country: NL (occurrence: NL)
  Receive Date: 20170320
  Receipt Date: 20170428
  Transmission Date: 20170830
  Serious: Yes (Other)
  Sender: FDA-Public Use
  Company Number: NL-AUROBINDO-AUR-APL-2017-31074

PATIENT
  Age: 12 Year
  Sex: Male

DRUGS (5)
  1. PREDNISONE. [Suspect]
     Active Substance: PREDNISONE
     Dosage: 5 MG/DAY EVERY OTHER DAY
     Route: 048
  2. PREDNISONE. [Suspect]
     Active Substance: PREDNISONE
     Dosage: 20 MG, ONCE A DAY
     Route: 048
  3. PREDNISONE. [Suspect]
     Active Substance: PREDNISONE
     Indication: HASHIMOTO^S ENCEPHALOPATHY
     Dosage: 1 MG/KG/DAY
     Route: 048
  4. MYCOPHENOLATE MOFETIL. [Concomitant]
     Active Substance: MYCOPHENOLATE MOFETIL
     Indication: HASHIMOTO^S ENCEPHALOPATHY
     Route: 065
  5. METHYLPREDNISOLONE. [Concomitant]
     Active Substance: METHYLPREDNISOLONE
     Indication: HASHIMOTO^S ENCEPHALOPATHY
     Dosage: 15 MG/KG, ONCE A DAY
     Route: 065

REACTIONS (3)
  - Cushing^s syndrome [Recovering/Resolving]
  - Drug effect decreased [Unknown]
  - Hypertension [Recovering/Resolving]
